FAERS Safety Report 5184693-X (Version None)
Quarter: 2006Q4

REPORT INFORMATION
  Report Type: 
  Country: None (occurrence: None)
  Receive Date: 20061220
  Receipt Date: 20060412
  Transmission Date: 20070319
  Serious: No
  Sender: FDA-Public Use
  Company Number: US-GLAXOSMITHKLINE-A0601545A

PATIENT
  Age: 62 Year

DRUGS (1)
  1. NICODERM CQ [Suspect]

REACTIONS (4)
  - INTENTIONAL DRUG MISUSE [None]
  - NERVOUSNESS [None]
  - THERAPEUTIC RESPONSE DECREASED [None]
  - WEIGHT INCREASED [None]
